FAERS Safety Report 23798614 (Version 1)
Quarter: 2024Q2

REPORT INFORMATION
  Report Type: Spontaneous
  Country: US (occurrence: US)
  Receive Date: 20240430
  Receipt Date: 20240430
  Transmission Date: 20240715
  Serious: Yes (Life-Threatening)
  Sender: FDA-Public Use
  Company Number: US-NEBO-658274

PATIENT
  Age: 86 Year
  Sex: Male

DRUGS (10)
  1. FUROSEMIDE [Concomitant]
     Active Substance: FUROSEMIDE
  2. SODIUM BICARBONATE [Concomitant]
     Active Substance: SODIUM BICARBONATE
  3. CALCITRIOL [Concomitant]
     Active Substance: CALCITRIOL
  4. CARBIDOPA\LEVODOPA [Concomitant]
     Active Substance: CARBIDOPA\LEVODOPA
  5. LISINOPRIL [Concomitant]
     Active Substance: LISINOPRIL
  6. ATORVASTATIN [Concomitant]
     Active Substance: ATORVASTATIN
  7. ASPIRIN [Concomitant]
     Active Substance: ASPIRIN
  8. TAMSULOSIN [Concomitant]
     Active Substance: TAMSULOSIN
  9. MONOFERRIC [Suspect]
     Active Substance: FERRIC DERISOMALTOSE
     Indication: Iron deficiency anaemia
  10. MONOFERRIC [Suspect]
     Active Substance: FERRIC DERISOMALTOSE
     Indication: Iron deficiency anaemia

REACTIONS (2)
  - Cardiac arrest [Recovered/Resolved]
  - Atrioventricular block complete [Recovered/Resolved]
